FAERS Safety Report 5824536-1 (Version None)
Quarter: 2008Q3

REPORT INFORMATION
  Report Type: 
  Country: None (occurrence: None)
  Receive Date: 20080722
  Receipt Date: 20080715
  Transmission Date: 20090109
  Serious: Yes (Death)
  Sender: FDA-Public Use
  Company Number: GXKR2008ES06593

PATIENT
  Age: 66 Year
  Sex: Male

DRUGS (8)
  1. METFORMIN HCL [Suspect]
     Indication: DEPRESSION
     Dosage: 850 MG, BID, ORAL
     Route: 048
     Dates: end: 20080512
  2. METFORMIN HCL [Suspect]
     Indication: TYPE 2 DIABETES MELLITUS
     Dosage: 850 MG, BID, ORAL
     Route: 048
     Dates: end: 20080512
  3. METFORMIN HCL [Suspect]
     Indication: VARICES OESOPHAGEAL
     Dosage: 850 MG, BID, ORAL
     Route: 048
     Dates: end: 20080512
  4. DACORTIN (PREDNISONE) TABLET [Concomitant]
  5. INACID - SLOW RELEASE (INDOMETACIN) SLOW RELEASE CAPSULES [Concomitant]
  6. METHOTREXATE SODIUM [Concomitant]
  7. CALCIUM (CALCIUM) [Concomitant]
  8. COLECALCIFEROL (COLECALCIFEROL) [Concomitant]

REACTIONS (2)
  - LACTIC ACIDOSIS [None]
  - SEPTIC SHOCK [None]
